FAERS Safety Report 10420150 (Version 1)
Quarter: 2014Q3

REPORT INFORMATION
  Report Type: Report from Study
  Country: US (occurrence: None)
  Receive Date: 20140804
  Receipt Date: 20140804
  Transmission Date: 20150326
  Serious: Yes (Hospitalization)
  Sender: FDA-Public Use
  Company Number: 2012US006324

PATIENT
  Age: 71 Year
  Sex: Female
  Weight: 130.6 kg

DRUGS (14)
  1. LISINOPRIL (LISINOPRIL) [Concomitant]
     Active Substance: LISINOPRIL
  2. GLASSIA [Suspect]
     Active Substance: .ALPHA.1-PROTEINASE INHIBITOR HUMAN
     Indication: ALPHA-1 ANTI-TRYPSIN DEFICIENCY
     Route: 042
     Dates: start: 20111122
  3. LEVOTHYROXINE SODIUIM (LEVOTHYROXINE SODIUM) [Concomitant]
  4. ALBUTEROL (SALBUTAMOL) [Concomitant]
     Active Substance: ALBUTEROL
  5. ATROVENT (IPRATROPIUM BROMIDE) [Concomitant]
  6. AEROBID (FLUNISOLIDE) [Concomitant]
  7. OXYGEN (OXYGEN) [Concomitant]
     Active Substance: OXYGEN
  8. LASIX [Concomitant]
     Active Substance: FUROSEMIDE
  9. TOSEMIDE (TORSEMIDE) [Concomitant]
  10. ASPIRIN (ACETYLSALICYLIC ACID) [Concomitant]
     Active Substance: ASPIRIN
  11. DULERA (FORMOTEROL FUMARATE, MOMETASONE FUROATE) [Concomitant]
  12. NITROGLYCERIN (GLYCERYL TRINITRATE) [Concomitant]
  13. CIPRO [Concomitant]
     Active Substance: CIPROFLOXACIN HYDROCHLORIDE
  14. POTASSIUM CHLORIDE (POTASSIUM CHLORIDE) [Concomitant]
     Active Substance: POTASSIUM CHLORIDE

REACTIONS (11)
  - Thyroid neoplasm [None]
  - Fluid retention [None]
  - Pneumonia [None]
  - Angina unstable [None]
  - Malaise [None]
  - Cerebrovascular accident [None]
  - Cardiac failure congestive [None]
  - Adrenal neoplasm [None]
  - Bronchitis [None]
  - Headache [None]
  - Aphasia [None]

NARRATIVE: CASE EVENT DATE: 20120803
